FAERS Safety Report 5500986-8 (Version None)
Quarter: 2007Q4

REPORT INFORMATION
  Report Type: 
  Country: None (occurrence: None)
  Receive Date: 20071029
  Receipt Date: 20071017
  Transmission Date: 20080405
  Serious: Yes (Other)
  Sender: FDA-Public Use
  Company Number: US-WYE-H00748807

PATIENT
  Age: 7 Day

DRUGS (1)
  1. BENEFIX [Suspect]
     Indication: FACTOR IX DEFICIENCY
     Dosage: DAILY (DOSE NOT PROVIDED)
     Route: 042
     Dates: start: 20071015

REACTIONS (2)
  - RESPIRATORY DISTRESS [None]
  - STRIDOR [None]
